FAERS Safety Report 14649713 (Version 1)
Quarter: 2018Q1

REPORT INFORMATION
  Report Type: Report from Study
  Country: AU (occurrence: AU)
  Receive Date: 20180316
  Receipt Date: 20180316
  Transmission Date: 20180509
  Serious: Yes (Other)
  Sender: FDA-Public Use
  Company Number: AU-TOLMAR, INC.-2018AU002782

PATIENT

DRUGS (14)
  1. QUINATE                            /00046702/ [Concomitant]
  2. ALPHAPRESS                         /00007602/ [Concomitant]
  3. VITAMIN D                          /00107901/ [Concomitant]
     Active Substance: ERGOCALCIFEROL
  4. RESTAVIT [Concomitant]
  5. LYRICA [Concomitant]
     Active Substance: PREGABALIN
  6. PROGOUT [Concomitant]
     Active Substance: ALLOPURINOL
  7. ELIGARD [Suspect]
     Active Substance: LEUPROLIDE ACETATE
     Indication: PROSTATE CANCER
     Dosage: 22.5 MG, EVERY 3 MONTHS
     Route: 058
     Dates: start: 20161212
  8. EFEXOR [Concomitant]
     Active Substance: VENLAFAXINE HYDROCHLORIDE
  9. LORSTAT [Concomitant]
     Active Substance: ATORVASTATIN CALCIUM
  10. TWYNSTA [Concomitant]
     Active Substance: AMLODIPINE BESYLATE\TELMISARTAN
  11. OXYCONTIN [Concomitant]
     Active Substance: OXYCODONE HYDROCHLORIDE
  12. DIABEX [Concomitant]
     Active Substance: METFORMIN HYDROCHLORIDE
  13. LASIX [Concomitant]
     Active Substance: FUROSEMIDE
  14. OSTEOMOL 665 PARACETAMOL [Concomitant]

REACTIONS (3)
  - Skin neoplasm excision [Unknown]
  - Blood glucose increased [Unknown]
  - Hypoglycaemia [Unknown]
